FAERS Safety Report 9684341 (Version 3)
Quarter: 2013Q4

REPORT INFORMATION
  Report Type: Spontaneous
  Country: JP (occurrence: JP)
  Receive Date: 20131112
  Receipt Date: 20131126
  Transmission Date: 20140711
  Serious: Yes (Hospitalization, Other)
  Sender: FDA-Public Use
  Company Number: JP-PFIZER INC-2013322352

PATIENT
  Age: 80 Year
  Sex: Female

DRUGS (3)
  1. CELECOX [Suspect]
     Dosage: 200 MG, DAILY
     Route: 048
  2. MICARDIS [Suspect]
     Dosage: UNK
     Route: 048
  3. MUCOSTA [Concomitant]
     Dosage: UNK
     Route: 048

REACTIONS (1)
  - Altered state of consciousness [Not Recovered/Not Resolved]
